FAERS Safety Report 13665195 (Version 1)
Quarter: 2017Q2

REPORT INFORMATION
  Report Type: Spontaneous
  Country: US (occurrence: US)
  Receive Date: 20170619
  Receipt Date: 20170619
  Transmission Date: 20170830
  Serious: Yes (Hospitalization, Other)
  Sender: FDA-Public Use
  Company Number: US-PIRAMAL ENTERPRISES LTD-2017-PEL-000767

PATIENT

DRUGS (7)
  1. KETAMINE [Concomitant]
     Active Substance: KETAMINE
     Indication: STATUS ASTHMATICUS
     Dosage: UNK
     Route: 065
  2. EPINEPHRINE. [Concomitant]
     Active Substance: EPINEPHRINE
     Indication: STATUS ASTHMATICUS
     Dosage: UNK
     Route: 065
  3. PROPOFOL. [Concomitant]
     Active Substance: PROPOFOL
     Indication: STATUS ASTHMATICUS
     Dosage: UNK
     Route: 065
  4. SEVOFLURANE, USP [Suspect]
     Active Substance: SEVOFLURANE
     Indication: STATUS ASTHMATICUS
     Dosage: UNK
     Route: 065
  5. GLUCOCORTICOIDS [Concomitant]
     Active Substance: UNSPECIFIED INGREDIENT
     Indication: STATUS ASTHMATICUS
     Dosage: UNK
     Route: 065
  6. MAGNESIUM [Concomitant]
     Active Substance: MAGNESIUM
     Indication: STATUS ASTHMATICUS
     Dosage: UNK
     Route: 065
  7. HELIOX [Concomitant]
     Active Substance: OXYGEN
     Indication: STATUS ASTHMATICUS

REACTIONS (9)
  - Cholestasis [Recovered/Resolved]
  - Maternal exposure during pregnancy [Recovered/Resolved]
  - Blood pressure increased [Recovered/Resolved]
  - Hepatitis [Recovered/Resolved]
  - Drug-induced liver injury [Recovered/Resolved]
  - Hypoxia [Recovered/Resolved]
  - Venoocclusive liver disease [Recovered/Resolved]
  - Off label use [Unknown]
  - Mental status changes [Recovered/Resolved]
